FAERS Safety Report 9177206 (Version 3)
Quarter: 2013Q4

REPORT INFORMATION
  Report Type: Report from Study
  Country: GB (occurrence: GB)
  Receive Date: 20130321
  Receipt Date: 20131211
  Transmission Date: 20140711
  Serious: Yes (Hospitalization, Other)
  Sender: FDA-Public Use
  Company Number: GB-TEVA-2011001448

PATIENT
  Age: 88 Year
  Sex: Male
  Weight: 67.3 kg

DRUGS (5)
  1. BENDAMUSTINE HCL [Suspect]
     Indication: CHRONIC LYMPHOCYTIC LEUKAEMIA
     Route: 042
     Dates: start: 20100817
  2. RITUXIMAB [Suspect]
     Indication: CHRONIC LYMPHOCYTIC LEUKAEMIA
     Route: 042
     Dates: start: 20100817
  3. BENDROFLUMETHIAZIDE [Concomitant]
     Dates: start: 1997, end: 20110218
  4. BISOPROLOL [Concomitant]
     Dates: start: 1997
  5. ASPIRIN [Concomitant]
     Dates: start: 1997

REACTIONS (2)
  - Lower respiratory tract infection [Recovered/Resolved]
  - Anaemia [Unknown]
